FAERS Safety Report 9705762 (Version 1)
Quarter: 2013Q4

REPORT INFORMATION
  Report Type: Spontaneous
  Country: US (occurrence: US)
  Receive Date: 20131122
  Receipt Date: 20131122
  Transmission Date: 20140711
  Serious: No
  Sender: FDA-Public Use
  Company Number: US-GILEAD-2008-0017985

PATIENT
  Sex: Female
  Weight: 48.99 kg

DRUGS (11)
  1. LETAIRIS [Suspect]
     Indication: PULMONARY ARTERIAL HYPERTENSION
     Route: 048
     Dates: start: 20080315
  2. ADVAIR 250/50 [Concomitant]
     Route: 048
  3. RAPAMUNE [Concomitant]
     Route: 048
  4. REMERON [Concomitant]
     Route: 048
  5. NEXIUM [Concomitant]
     Route: 048
  6. PROCRIT [Concomitant]
  7. DOMPERIDONE POWDER [Concomitant]
     Route: 048
  8. FERROUS SULFATE [Concomitant]
     Route: 048
  9. ZEMPLAR [Concomitant]
     Route: 048
  10. CALCIUM +D [Concomitant]
     Route: 048
  11. VITAMIN D [Concomitant]
     Route: 048

REACTIONS (1)
  - Oedema [None]
